FAERS Safety Report 7774736-9 (Version None)
Quarter: 2011Q3

REPORT INFORMATION
  Report Type: 
  Country: None (occurrence: None)
  Receive Date: 20110923
  Receipt Date: 20110920
  Transmission Date: 20111222
  Serious: Yes (Other)
  Sender: FDA-Public Use
  Company Number: CHPA2011US12824

PATIENT
  Age: 61 Year
  Sex: Female

DRUGS (1)
  1. VOLTAREN [Suspect]
     Indication: ARTHRALGIA
     Dosage: A DROP, ONCE
     Route: 061
     Dates: start: 20110913, end: 20110913

REACTIONS (7)
  - DRUG ADMINISTERED AT INAPPROPRIATE SITE [None]
  - WRONG TECHNIQUE IN DRUG USAGE PROCESS [None]
  - BLISTER [None]
  - ERYTHEMA [None]
  - BURNS THIRD DEGREE [None]
  - APPLICATION SITE BURN [None]
  - OFF LABEL USE [None]
